FAERS Safety Report 5214433-7 (Version None)
Quarter: 2007Q1

REPORT INFORMATION
  Report Type: 
  Country: None (occurrence: None)
  Receive Date: 20070116
  Receipt Date: 20070102
  Transmission Date: 20070707
  Serious: Yes (Hospitalization)
  Sender: FDA-Public Use
  Company Number: 230024K07USA

PATIENT
  Sex: Male

DRUGS (2)
  1. REBIF [Suspect]
     Indication: MULTIPLE SCLEROSIS
     Dosage: 44 MNG, 3 IN 1 WEEKS
     Dates: start: 20040108, end: 20061130
  2. LISINOPRIL (LISINOPRIL/00894001/) [Concomitant]

REACTIONS (4)
  - INJECTION SITE CELLULITIS [None]
  - INJECTION SITE NECROSIS [None]
  - OEDEMA PERIPHERAL [None]
  - PAIN IN EXTREMITY [None]
